FAERS Safety Report 5042046-9 (Version None)
Quarter: 2006Q2

REPORT INFORMATION
  Report Type: 
  Country: None (occurrence: None)
  Receive Date: 20060627
  Receipt Date: 20060607
  Transmission Date: 20061013
  Serious: Yes (Other)
  Sender: FDA-Public Use
  Company Number: DSA_28284_2006

PATIENT
  Age: 79 Year
  Sex: Female

DRUGS (13)
  1. DILTIAZEM HCL [Suspect]
     Dosage: 300 MG Q DAY PO
     Route: 048
     Dates: start: 20050901
  2. TIAZAC [Suspect]
     Dosage: 300 MG Q DAY PO
     Route: 048
     Dates: start: 20030101, end: 20050901
  3. ASPIRIN [Concomitant]
  4. PREVACID [Concomitant]
  5. DYAZIDE [Concomitant]
  6. VITAMINS PLUS IRON [Concomitant]
  7. SINGULAIR [Concomitant]
  8. ZOCOR [Concomitant]
  9. NITRO [Concomitant]
  10. ALPHAGAN [Concomitant]
  11. FORMOTERAL WITH ^BUDESIDE^ [Concomitant]
  12. SPIRIVA [Concomitant]
  13. ALBUTEROL SPIROS [Concomitant]

REACTIONS (3)
  - COLON CANCER [None]
  - OXYGEN SATURATION DECREASED [None]
  - TOTAL LUNG CAPACITY DECREASED [None]
